FAERS Safety Report 25485162 (Version 1)
Quarter: 2025Q2

REPORT INFORMATION
  Report Type: Spontaneous
  Country: FR (occurrence: FR)
  Receive Date: 20250626
  Receipt Date: 20250626
  Transmission Date: 20250717
  Serious: Yes (Other)
  Sender: MYLAN
  Company Number: FR-BIOGARAN-B25001053

PATIENT
  Age: 50 Year
  Sex: Male

DRUGS (20)
  1. ARIPIPRAZOLE [Suspect]
     Active Substance: ARIPIPRAZOLE
     Indication: Schizophrenia
  2. ARIPIPRAZOLE [Suspect]
     Active Substance: ARIPIPRAZOLE
     Route: 065
  3. ARIPIPRAZOLE [Suspect]
     Active Substance: ARIPIPRAZOLE
     Route: 065
  4. ARIPIPRAZOLE [Suspect]
     Active Substance: ARIPIPRAZOLE
  5. RISPERIDONE [Suspect]
     Active Substance: RISPERIDONE
     Indication: Schizophrenia
  6. RISPERIDONE [Suspect]
     Active Substance: RISPERIDONE
     Route: 065
  7. RISPERIDONE [Suspect]
     Active Substance: RISPERIDONE
     Route: 065
  8. RISPERIDONE [Suspect]
     Active Substance: RISPERIDONE
  9. AMISULPRIDE [Suspect]
     Active Substance: AMISULPRIDE
     Indication: Schizophrenia
  10. AMISULPRIDE [Suspect]
     Active Substance: AMISULPRIDE
     Route: 065
  11. AMISULPRIDE [Suspect]
     Active Substance: AMISULPRIDE
     Route: 065
  12. AMISULPRIDE [Suspect]
     Active Substance: AMISULPRIDE
  13. CLOZAPINE [Suspect]
     Active Substance: CLOZAPINE
     Indication: Schizophrenia
  14. CLOZAPINE [Suspect]
     Active Substance: CLOZAPINE
     Route: 065
  15. CLOZAPINE [Suspect]
     Active Substance: CLOZAPINE
     Route: 065
  16. CLOZAPINE [Suspect]
     Active Substance: CLOZAPINE
  17. FLUPENTIXOL [Suspect]
     Active Substance: FLUPENTIXOL
     Indication: Schizophrenia
  18. FLUPENTIXOL [Suspect]
     Active Substance: FLUPENTIXOL
     Route: 065
  19. FLUPENTIXOL [Suspect]
     Active Substance: FLUPENTIXOL
     Route: 065
  20. FLUPENTIXOL [Suspect]
     Active Substance: FLUPENTIXOL

REACTIONS (5)
  - Neutropenia [Unknown]
  - Hypertonia [Unknown]
  - Dyskinesia [Unknown]
  - Confusional state [Unknown]
  - Fall [Unknown]

NARRATIVE: CASE EVENT DATE: 20200101
